FAERS Safety Report 9894040 (Version 2)
Quarter: 2014Q2

REPORT INFORMATION
  Report Type: Spontaneous
  Country: US (occurrence: US)
  Receive Date: 20140213
  Receipt Date: 20140404
  Transmission Date: 20141212
  Serious: No
  Sender: FDA-Public Use
  Company Number: US-PFIZER INC-2014036298

PATIENT
  Age: 47 Year
  Sex: Male

DRUGS (5)
  1. XALKORI [Suspect]
     Indication: METASTATIC NEOPLASM
     Dosage: 250 MG, 2X/DAY
     Route: 048
     Dates: start: 20130904
  2. XALKORI [Suspect]
     Dosage: 250 MG, 2X/DAY
     Route: 048
  3. XALKORI [Suspect]
     Dosage: 250 MG, 2X/DAY
     Route: 048
  4. XALKORI [Suspect]
     Dosage: 250 MG, 2X/DAY
     Route: 048
  5. XALKORI [Suspect]
     Dosage: 250 MG, 2X/DAY
     Route: 048
     Dates: end: 20140205

REACTIONS (2)
  - Disease progression [Unknown]
  - Metastatic neoplasm [Unknown]
